FAERS Safety Report 9787101 (Version 1)
Quarter: 2013Q4

REPORT INFORMATION
  Report Type: Spontaneous
  Country: US (occurrence: US)
  Receive Date: 20131228
  Receipt Date: 20131228
  Transmission Date: 20140711
  Serious: No
  Sender: FDA-Public Use
  Company Number: US-009507513-1312USA007444

PATIENT
  Age: 45 Year
  Sex: Female

DRUGS (1)
  1. NASONEX [Suspect]
     Indication: HYPERSENSITIVITY
     Dosage: 1 SPRAY IN EACH NOSTRIL IN THE EVENING
     Route: 045
     Dates: start: 200812

REACTIONS (5)
  - Rhinorrhoea [Not Recovered/Not Resolved]
  - Drug dose omission [Unknown]
  - Underdose [Unknown]
  - Inappropriate schedule of drug administration [Unknown]
  - Product quality issue [Unknown]
